FAERS Safety Report 18979777 (Version 1)
Quarter: 2021Q1

REPORT INFORMATION
  Report Type: Spontaneous
  Country: US (occurrence: US)
  Receive Date: 20210308
  Receipt Date: 20210308
  Transmission Date: 20210420
  Serious: Yes (Hospitalization)
  Sender: FDA-Public Use
  Company Number: US-BTGSP-US-BTGSP-20-0030

PATIENT
  Age: 62 Year
  Sex: Male

DRUGS (3)
  1. HEPARIN [Concomitant]
     Active Substance: HEPARIN SODIUM
     Indication: THROMBOSIS PROPHYLAXIS
     Dosage: UNK
     Route: 058
  2. CROFAB [Suspect]
     Active Substance: CROTALIDAE POLYVALENT IMMUNE FAB (OVINE)
     Indication: SNAKE BITE
     Dosage: SIX VIALS
     Route: 041
  3. CROFAB [Suspect]
     Active Substance: CROTALIDAE POLYVALENT IMMUNE FAB (OVINE)
     Dosage: 4 VIALS, Q6H, (16 VIALS TOTAL)
     Route: 041

REACTIONS (3)
  - Anaemia [Recovered/Resolved]
  - Off label use [Unknown]
  - Thrombocytopenia [Recovered/Resolved]
